FAERS Safety Report 7357052-9 (Version None)
Quarter: 2011Q1

REPORT INFORMATION
  Report Type: 
  Country: None (occurrence: None)
  Receive Date: 20110308
  Receipt Date: 20110222
  Transmission Date: 20110831
  Serious: Yes (Death)
  Sender: FDA-Public Use
  Company Number: 2011DZ0044

PATIENT
  Age: 8 Month
  Sex: Male

DRUGS (7)
  1. CEFOTAXIME [Concomitant]
  2. ORFADIN [Suspect]
     Indication: TYROSINAEMIA
     Dosage: 10 MG (5 MG, 2 IN 1 D), ORAL
     Route: 048
     Dates: start: 20110209, end: 20110217
  3. FUROSEMIDE [Concomitant]
  4. VITAMIN K TAB [Concomitant]
  5. VANCOMYCINE [Concomitant]
  6. ALBUMIN (HUMAN) [Concomitant]
  7. METRONIDAZOLE [Concomitant]

REACTIONS (2)
  - SUDDEN DEATH [None]
  - HAEMOLYTIC URAEMIC SYNDROME [None]
